FAERS Safety Report 17117717 (Version 1)
Quarter: 2019Q4

REPORT INFORMATION
  Report Type: Spontaneous
  Country: GB (occurrence: GB)
  Receive Date: 20191205
  Receipt Date: 20191205
  Transmission Date: 20200122
  Serious: Yes (Other)
  Sender: FDA-Public Use
  Company Number: GB-JNJFOC-20191147039

PATIENT
  Sex: Female

DRUGS (1)
  1. SIMPONI [Suspect]
     Active Substance: GOLIMUMAB
     Indication: BEHCET^S SYNDROME
     Dosage: 50 MG/0.5 ML
     Route: 058

REACTIONS (3)
  - Off label use [Unknown]
  - Intestinal prolapse [Unknown]
  - Product use in unapproved indication [Unknown]
